FAERS Safety Report 9786258 (Version 1)
Quarter: 2013Q4

REPORT INFORMATION
  Report Type: Spontaneous
  Country: IT (occurrence: None)
  Receive Date: 20131224
  Receipt Date: 20131224
  Transmission Date: 20140711
  Serious: Yes (Other)
  Sender: FDA-Public Use
  Company Number: 2013SCDP000087

PATIENT
  Sex: Male

DRUGS (1)
  1. PRILOCAINE AND LIDOCAINE (LIDOCAINE, PRILOCAINE) UNKNOWN [Suspect]
     Indication: PRODUCT USED FOR UNKNOWN INDICATION

REACTIONS (3)
  - Vertigo [None]
  - Headache [None]
  - Hypersensitivity [None]
